FAERS Safety Report 20361214 (Version 4)
Quarter: 2022Q2

REPORT INFORMATION
  Report Type: Other
  Country: PT (occurrence: None)
  Receive Date: 20220121
  Receipt Date: 20220404
  Transmission Date: 20220720
  Serious: Yes (Hospitalization, Other)
  Sender: FDA-Public Use
  Company Number: PT-ROCHE-2090935

PATIENT
  Age: 42 Year
  Sex: Female
  Weight: 57 kg

DRUGS (17)
  1. TRASTUZUMAB [Suspect]
     Active Substance: TRASTUZUMAB
     Indication: HER2 positive breast cancer
     Route: 042
     Dates: start: 20170606, end: 20180406
  2. TRASTUZUMAB [Suspect]
     Active Substance: TRASTUZUMAB
     Route: 042
     Dates: start: 20200615
  3. ADO-TRASTUZUMAB EMTANSINE [Suspect]
     Active Substance: ADO-TRASTUZUMAB EMTANSINE
     Indication: HER2 positive breast cancer
     Route: 042
     Dates: start: 20180806, end: 20190128
  4. ADO-TRASTUZUMAB EMTANSINE [Suspect]
     Active Substance: ADO-TRASTUZUMAB EMTANSINE
     Route: 042
     Dates: start: 20190213, end: 20190327
  5. ADO-TRASTUZUMAB EMTANSINE [Suspect]
     Active Substance: ADO-TRASTUZUMAB EMTANSINE
     Route: 042
     Dates: start: 20190517, end: 20190606
  6. ADO-TRASTUZUMAB EMTANSINE [Suspect]
     Active Substance: ADO-TRASTUZUMAB EMTANSINE
     Route: 042
     Dates: start: 20190628, end: 20190717
  7. ADO-TRASTUZUMAB EMTANSINE [Suspect]
     Active Substance: ADO-TRASTUZUMAB EMTANSINE
     Route: 042
     Dates: start: 20190726, end: 20190814
  8. ADO-TRASTUZUMAB EMTANSINE [Suspect]
     Active Substance: ADO-TRASTUZUMAB EMTANSINE
     Route: 042
     Dates: start: 20190930, end: 20191001
  9. ADO-TRASTUZUMAB EMTANSINE [Suspect]
     Active Substance: ADO-TRASTUZUMAB EMTANSINE
     Route: 042
     Dates: start: 20191106, end: 20200522
  10. PERTUZUMAB [Suspect]
     Active Substance: PERTUZUMAB
     Indication: HER2 positive breast cancer
     Dosage: MOST RECENT DOSE PRIOR TO THE EVENT: 06/JUN/2017 AND 06/APR/2018
     Route: 042
     Dates: start: 20170606
  11. DOCETAXEL [Suspect]
     Active Substance: DOCETAXEL
     Indication: HER2 positive breast cancer
     Route: 042
     Dates: start: 20170606, end: 20170704
  12. DOCETAXEL [Suspect]
     Active Substance: DOCETAXEL
     Route: 042
     Dates: start: 20170718, end: 20171102
  13. VINORELBINE [Suspect]
     Active Substance: VINORELBINE TARTRATE
     Indication: HER2 positive breast cancer
     Dosage: ONCE A WEEK, TWO WEEKS IN A ROW WITH 2-WEEK BREAK
     Route: 042
     Dates: start: 20200615, end: 20210301
  14. VINORELBINE [Suspect]
     Active Substance: VINORELBINE TARTRATE
     Route: 048
     Dates: start: 20200615
  15. VINORELBINE [Suspect]
     Active Substance: VINORELBINE TARTRATE
     Dosage: ONCE A WEEK, TWO WEEKS IN A ROW WITH 2-WEEK BREAK
     Route: 048
     Dates: start: 20210426
  16. ACETAMINOPHEN [Concomitant]
     Active Substance: ACETAMINOPHEN
     Indication: Pyrexia
     Route: 048
     Dates: start: 20170704
  17. BISOPROLOL [Concomitant]
     Active Substance: BISOPROLOL
     Route: 048

REACTIONS (3)
  - Neutropenia [Recovered/Resolved]
  - Febrile neutropenia [Recovered/Resolved]
  - Neutrophilia [Recovered/Resolved]

NARRATIVE: CASE EVENT DATE: 20170704
